FAERS Safety Report 6676120-8 (Version None)
Quarter: 2010Q2

REPORT INFORMATION
  Report Type: 
  Country: None (occurrence: None)
  Receive Date: 20100412
  Receipt Date: 20100331
  Transmission Date: 20101027
  Serious: Yes (Other)
  Sender: FDA-Public Use
  Company Number: US-PFIZER INC-2008045233

PATIENT
  Sex: Female
  Weight: 70.748 kg

DRUGS (6)
  1. AROMASIN [Suspect]
     Indication: BREAST CANCER
     Dosage: 25 MG, 1X/DAY
     Route: 048
     Dates: start: 20080201
  2. SYNTHROID [Concomitant]
     Indication: HYPOTHYROIDISM
     Dosage: 100 MCG, UNK
  3. BENICAR HCT [Concomitant]
     Dosage: 40/12.5, DAILY
  4. MULTI-VITAMINS [Concomitant]
  5. ACETYLSALICYLIC ACID [Concomitant]
     Dosage: 81 MG, DAILY
  6. VITAMIN D [Concomitant]
     Dosage: UNK

REACTIONS (13)
  - BREAST CANCER [None]
  - CARPAL TUNNEL SYNDROME [None]
  - CONDITION AGGRAVATED [None]
  - DISEASE PROGRESSION [None]
  - GROIN PAIN [None]
  - HOT FLUSH [None]
  - HYPOAESTHESIA [None]
  - INTERVERTEBRAL DISC SPACE NARROWING [None]
  - NEURALGIA [None]
  - OEDEMA PERIPHERAL [None]
  - PAIN IN EXTREMITY [None]
  - PARAESTHESIA [None]
  - RASH [None]
